FAERS Safety Report 5964851-4 (Version None)
Quarter: 2008Q4

REPORT INFORMATION
  Report Type: 
  Country: None (occurrence: None)
  Receive Date: 20081124
  Receipt Date: 20081124
  Transmission Date: 20090506
  Serious: No
  Sender: FDA-Public Use
  Company Number: None

PATIENT
  Age: 9 Year
  Sex: Male
  Weight: 31.7518 kg

DRUGS (1)
  1. LAMOTRIGINE [Suspect]
     Indication: CONVULSION
     Dosage: 12.5 1 DAILY FOR 1 WEEK PO; 12.5 2 DAILY FOR 1 WEEK PO
     Route: 048
     Dates: start: 20081017, end: 20081110

REACTIONS (11)
  - ABDOMINAL PAIN [None]
  - ABNORMAL BEHAVIOUR [None]
  - ANGER [None]
  - ASTHENIA [None]
  - CRYING [None]
  - DIPLOPIA [None]
  - FEELING ABNORMAL [None]
  - HEADACHE [None]
  - NAUSEA [None]
  - PHOTOPHOBIA [None]
  - SELF-INJURIOUS IDEATION [None]
